FAERS Safety Report 21976543 (Version 5)
Quarter: 2023Q1

REPORT INFORMATION
  Report Type: Spontaneous
  Country: US (occurrence: US)
  Receive Date: 20230210
  Receipt Date: 20230303
  Transmission Date: 20230418
  Serious: No
  Sender: FDA-Public Use
  Company Number: US-PFIZER INC-PV202300024033

PATIENT
  Age: 12 Year
  Sex: Female
  Weight: 30.844 kg

DRUGS (3)
  1. GENOTROPIN [Suspect]
     Active Substance: SOMATROPIN
     Indication: Growth retardation
     Dosage: 1.2 MG, ALTERNATE DAY (1.2 MG ALTERNATING EVERY OTHER DAY)
     Dates: start: 20230127
  2. GENOTROPIN [Suspect]
     Active Substance: SOMATROPIN
     Dosage: 1.4 MG, ALTERNATE DAY (1.4 MG ALTERNATING EVERY OTHER DAY)
     Dates: start: 20230128
  3. GENOTROPIN [Suspect]
     Active Substance: SOMATROPIN
     Dosage: 1.3 ML, 1X/DAY (1.3 MILLILITERS A DAY, 1.2 ONE DAY AND AND THEN THE 1.4 THE NEXT DAY)

REACTIONS (5)
  - Wrong technique in device usage process [Unknown]
  - Device difficult to use [Unknown]
  - Drug dose omission by device [Unknown]
  - Device leakage [Unknown]
  - Product prescribing error [Unknown]

NARRATIVE: CASE EVENT DATE: 20230101
